FAERS Safety Report 7776912 (Version 4)
Quarter: 2013Q2

REPORT INFORMATION
  Report Type: Spontaneous
  Country: US (occurrence: US)
  Receive Date: 20110127
  Receipt Date: 20130605
  Transmission Date: 20140414
  Serious: Yes (Hospitalization)
  Sender: FDA-Public Use
  Company Number: US-BAYER-2011-006785

PATIENT
  Age: 20 Year
  Sex: Female
  Weight: 78.91 kg

DRUGS (11)
  1. YASMIN [Suspect]
     Indication: CONTRACEPTION
     Dosage: UNK
     Route: 048
     Dates: start: 200605, end: 2009
  2. OCELLA [Suspect]
     Indication: CONTRACEPTION
     Route: 048
     Dates: start: 200605, end: 2009
  3. XANAX [Concomitant]
     Indication: ANXIETY
  4. MOBIC [Concomitant]
  5. CYMBALTA [Concomitant]
     Indication: DEPRESSION
  6. TRAZODONE [Concomitant]
     Indication: DEPRESSION
  7. TRAZODONE [Concomitant]
     Indication: SLEEP DISORDER THERAPY
  8. ANTIBIOTICS [Concomitant]
     Indication: URINARY TRACT INFECTION
     Dosage: UNK
     Dates: start: 20090213
  9. NAPROXEN [Concomitant]
  10. OXYCODONE/APAP [Concomitant]
     Dosage: 5-325 MG- 1 TABLET EVERY 4 HOURS
     Route: 048
  11. AZITHROMYCIN [Concomitant]
     Dosage: 250 MG, UNK

REACTIONS (8)
  - Pulmonary embolism [Recovered/Resolved]
  - Injury [None]
  - Thrombosis [None]
  - Pain [None]
  - Emotional distress [None]
  - Anxiety [None]
  - Depression [None]
  - Mental disorder [None]
